FAERS Safety Report 10669606 (Version 1)
Quarter: 2014Q4

REPORT INFORMATION
  Report Type: Spontaneous
  Country: BR (occurrence: BR)
  Receive Date: 20141222
  Receipt Date: 20141222
  Transmission Date: 20150529
  Serious: Yes (Other)
  Sender: FDA-Public Use
  Company Number: BR-MERCK-1412BRA008076

PATIENT
  Age: 17 Year
  Sex: Female
  Weight: 60 kg

DRUGS (4)
  1. PAXIL [Concomitant]
     Active Substance: PAROXETINE HYDROCHLORIDE
     Indication: PANIC DISORDER
     Dosage: 25 MG, QD
     Route: 048
     Dates: start: 201412
  2. PAMELOR [Concomitant]
     Active Substance: NORTRIPTYLINE HYDROCHLORIDE
     Indication: PANIC DISORDER
     Dosage: 10 MG, QD
     Route: 048
     Dates: start: 201412
  3. RIVOTRIL [Concomitant]
     Active Substance: CLONAZEPAM
     Indication: PANIC DISORDER
     Dosage: .25 MG, QD
     Route: 048
     Dates: start: 201412
  4. REMERON SOLTAB [Suspect]
     Active Substance: MIRTAZAPINE
     Indication: PANIC DISORDER
     Dosage: 15 MG, QD
     Route: 048
     Dates: start: 20141201, end: 20141214

REACTIONS (3)
  - Seizure [Not Recovered/Not Resolved]
  - Off label use [Unknown]
  - Tachycardia [Not Recovered/Not Resolved]

NARRATIVE: CASE EVENT DATE: 20141201
